FAERS Safety Report 12991783 (Version 1)
Quarter: 2016Q4

REPORT INFORMATION
  Report Type: Spontaneous
  Country: US (occurrence: US)
  Receive Date: 20161201
  Receipt Date: 20161201
  Transmission Date: 20170207
  Serious: No
  Sender: FDA-Public Use
  Company Number: US-B.I. PHARMACEUTICALS,INC./RIDGEFIELD-2016-BI-082079

PATIENT
  Age: 78 Year
  Sex: Female

DRUGS (1)
  1. ATROVENT [Suspect]
     Active Substance: IPRATROPIUM BROMIDE
     Indication: ASTHMA
     Dosage: 2 PUFFS 4 TIMES A DAY;  FORM STRENGTH: 17 MCG; FORMULATION: INHALATION AEROSOL
     Route: 055
     Dates: start: 20150601, end: 201507

REACTIONS (3)
  - Oral candidiasis [Recovered/Resolved]
  - Off label use [Unknown]
  - Dysphonia [Recovered/Resolved]

NARRATIVE: CASE EVENT DATE: 20150601
